FAERS Safety Report 23840135 (Version 1)
Quarter: 2024Q2

REPORT INFORMATION
  Report Type: Spontaneous
  Country: US (occurrence: US)
  Receive Date: 20240510
  Receipt Date: 20240510
  Transmission Date: 20240716
  Serious: Yes (Death, Hospitalization, Other)
  Sender: FDA-Public Use
  Company Number: US-GSK-US2024057911

PATIENT

DRUGS (1)
  1. BREO ELLIPTA [Suspect]
     Active Substance: FLUTICASONE FUROATE\VILANTEROL TRIFENATATE
     Indication: Asthma
     Dosage: 1 PUFF(S), QD  (200/25MCG USE 1 INHALATION)
     Route: 048
     Dates: start: 202101, end: 20240407

REACTIONS (4)
  - Acute respiratory failure [Fatal]
  - Pulmonary oedema [Unknown]
  - Blood glucose decreased [Unknown]
  - Dysphagia [Unknown]
